FAERS Safety Report 10905162 (Version 1)
Quarter: 2015Q1

REPORT INFORMATION
  Report Type: Spontaneous
  Country: US (occurrence: None)
  Receive Date: 20150107
  Receipt Date: 20150107
  Transmission Date: 20150721
  Serious: No
  Sender: FDA-Public Use
  Company Number: 2014TUS012195

PATIENT
  Age: 41 Year
  Sex: Female
  Weight: 98.4 kg

DRUGS (2)
  1. INVOKANA [Concomitant]
     Active Substance: CANAGLIFLOZIN
  2. CONTRAVE [Suspect]
     Active Substance: BUPROPION HYDROCHLORIDE\NALTREXONE HYDROCHLORIDE
     Indication: OVERWEIGHT
     Dosage: 1 DF, QD, IN AM, UNKNOWN
     Dates: start: 20141118, end: 20141119

REACTIONS (8)
  - Headache [None]
  - Nausea [None]
  - Incoherent [None]
  - Hypersomnia [None]
  - Aphagia [None]
  - Bedridden [None]
  - Hypoaesthesia [None]
  - Vomiting [None]

NARRATIVE: CASE EVENT DATE: 20141118
